FAERS Safety Report 16854859 (Version 1)
Quarter: 2019Q3

REPORT INFORMATION
  Report Type: Spontaneous
  Country: US (occurrence: US)
  Receive Date: 20190805
  Receipt Date: 20190805
  Transmission Date: 20191005
  Serious: No
  Sender: FDA-Public Use
  Company Number: None

PATIENT
  Age: 25 Year
  Sex: Female

DRUGS (1)
  1. LAMIVUDINE (HBV) TAB 100 MG [Suspect]
     Active Substance: LAMIVUDINE
     Dates: start: 20090101

REACTIONS (1)
  - Pneumonia [None]

NARRATIVE: CASE EVENT DATE: 20090401
